FAERS Safety Report 11872343 (Version 1)
Quarter: 2015Q4

REPORT INFORMATION
  Report Type: Spontaneous
  Country: US (occurrence: US)
  Receive Date: 20151228
  Receipt Date: 20151228
  Transmission Date: 20160305
  Serious: No
  Sender: FDA-Public Use
  Company Number: US-FRESENIUS KABI-FK201506841

PATIENT
  Age: 50 Year
  Sex: Male
  Weight: 89.44 kg

DRUGS (1)
  1. NEBUPENT [Suspect]
     Active Substance: PENTAMIDINE ISETHIONATE
     Indication: PRODUCT USED FOR UNKNOWN INDICATION
     Route: 050
     Dates: start: 20151214

REACTIONS (1)
  - Electric shock [Recovered/Resolved]

NARRATIVE: CASE EVENT DATE: 20151214
